FAERS Safety Report 7281602-4 (Version None)
Quarter: 2011Q1

REPORT INFORMATION
  Report Type: 
  Country: None (occurrence: None)
  Receive Date: 20110208
  Receipt Date: 20110203
  Transmission Date: 20110831
  Serious: Yes (Death, Hospitalization, Other)
  Sender: FDA-Public Use
  Company Number: PHHY2011BR09137

PATIENT
  Sex: Male

DRUGS (1)
  1. FORASEQ [Suspect]
     Indication: EMPHYSEMA
     Dosage: 2 DF, QD

REACTIONS (7)
  - URINARY TRACT INFECTION [None]
  - SEPTIC SHOCK [None]
  - PNEUMONIA [None]
  - DECREASED INTEREST [None]
  - BLOOD GLUCOSE INCREASED [None]
  - FASTING [None]
  - CHRONIC OBSTRUCTIVE PULMONARY DISEASE [None]
